FAERS Safety Report 11455648 (Version 1)
Quarter: 2015Q3

REPORT INFORMATION
  Report Type: Spontaneous
  Country: US (occurrence: US)
  Receive Date: 20150903
  Receipt Date: 20150903
  Transmission Date: 20151125
  Serious: No
  Sender: FDA-Public Use
  Company Number: US-BEH-2014046149

PATIENT
  Sex: Male
  Weight: 65.8 kg

DRUGS (18)
  1. IPRAT-ALBUT [Concomitant]
  2. SPIRIVA [Concomitant]
     Active Substance: TIOTROPIUM BROMIDE MONOHYDRATE
  3. LIPITOR [Concomitant]
     Active Substance: ATORVASTATIN CALCIUM
  4. SODIUM CHLORIDE. [Concomitant]
     Active Substance: SODIUM CHLORIDE
  5. FISH OIL [Concomitant]
     Active Substance: FISH OIL
  6. FLUTICASONE [Concomitant]
     Active Substance: FLUTICASONE\FLUTICASONE PROPIONATE
  7. CRESTOR [Concomitant]
     Active Substance: ROSUVASTATIN CALCIUM
  8. PROVENTIL [Concomitant]
     Active Substance: ALBUTEROL
  9. HEPARIN [Concomitant]
     Active Substance: HEPARIN SODIUM
  10. ZEMAIRA [Suspect]
     Active Substance: .ALPHA.1-PROTEINASE INHIBITOR HUMAN
     Indication: ALPHA-1 ANTI-TRYPSIN DEFICIENCY
     Route: 042
  11. SYMBICORT [Concomitant]
     Active Substance: BUDESONIDE\FORMOTEROL FUMARATE DIHYDRATE
  12. LIDOCAINE/PRILOCAINE [Concomitant]
  13. EPIPEN [Concomitant]
     Active Substance: EPINEPHRINE
  14. VITAMIN B12 [Concomitant]
     Active Substance: CYANOCOBALAMIN
  15. VITAMIN D [Concomitant]
     Active Substance: CHOLECALCIFEROL
  16. DIPHENHYDRAMINE. [Concomitant]
     Active Substance: DIPHENHYDRAMINE
  17. MELOXICAM. [Concomitant]
     Active Substance: MELOXICAM
  18. PSEUDOEPHEDRINE [Concomitant]
     Active Substance: PSEUDOEPHEDRINE

REACTIONS (1)
  - Back pain [Unknown]
